FAERS Safety Report 23878064 (Version 1)
Quarter: 2024Q2

REPORT INFORMATION
  Report Type: Report from Study
  Country: CA (occurrence: CA)
  Receive Date: 20240521
  Receipt Date: 20240521
  Transmission Date: 20240716
  Serious: Yes (Other)
  Sender: FDA-Public Use
  Company Number: CA-ABBVIE-5762262

PATIENT
  Sex: Female

DRUGS (1)
  1. SKYRIZI [Suspect]
     Active Substance: RISANKIZUMAB-RZAA
     Indication: Crohn^s disease
     Route: 058
     Dates: start: 20230606

REACTIONS (4)
  - Stoma creation [Unknown]
  - Abdominal pain [Not Recovered/Not Resolved]
  - Enterocutaneous fistula [Unknown]
  - Impaired quality of life [Not Recovered/Not Resolved]
